FAERS Safety Report 9370561 (Version 1)
Quarter: 2013Q2

REPORT INFORMATION
  Report Type: Spontaneous
  Country: US (occurrence: US)
  Receive Date: 20130626
  Receipt Date: 20130626
  Transmission Date: 20140414
  Serious: Yes (Other)
  Sender: FDA-Public Use
  Company Number: US-PFIZER INC-2013189308

PATIENT
  Age: 48 Year
  Sex: Female
  Weight: 112.47 kg

DRUGS (4)
  1. LYRICA [Suspect]
     Indication: DIABETIC NEUROPATHY
     Dosage: 50 MG, 3X/DAY
  2. LYRICA [Suspect]
     Dosage: 75 MG, 3X/DAY
  3. HUMULIN N [Concomitant]
     Indication: DIABETES MELLITUS
     Dosage: 32 IU, 1X/DAY AT BED TIME
  4. HUMULIN R [Concomitant]
     Indication: DIABETES MELLITUS
     Dosage: 4 IU, 1X/DAY AT BED

REACTIONS (2)
  - VIIth nerve paralysis [Unknown]
  - Eye pain [Unknown]
